FAERS Safety Report 17014928 (Version 2)
Quarter: 2020Q1

REPORT INFORMATION
  Report Type: Report from Study
  Country: BE (occurrence: BE)
  Receive Date: 20191111
  Receipt Date: 20200121
  Transmission Date: 20200409
  Serious: Yes (Other)
  Sender: FDA-Public Use
  Company Number: BE-ROCHE-2459618

PATIENT
  Age: 37 Year

DRUGS (2)
  1. ATEZOLIZUMAB. [Suspect]
     Active Substance: ATEZOLIZUMAB
     Indication: CERVIX CARCINOMA RECURRENT
     Dosage: LAST DOSE (1200 MG) OF ATEZOLIZUMAB PRIOR TO EVENT: 25/OCT/2019
     Route: 042
  2. DOXORUBICINE [DOXORUBICIN] [Suspect]
     Active Substance: DOXORUBICIN
     Indication: CERVIX CARCINOMA RECURRENT
     Dosage: LAST DOSE (106.6 MG) OF DOXORUBICIN PRIOR TO EVENT: 25/OCT/2019
     Route: 065

REACTIONS (2)
  - Tongue pigmentation [Recovering/Resolving]
  - Skin hyperpigmentation [Recovering/Resolving]

NARRATIVE: CASE EVENT DATE: 20191017
